FAERS Safety Report 4966156-7 (Version None)
Quarter: 2006Q2

REPORT INFORMATION
  Report Type: 
  Country: None (occurrence: None)
  Receive Date: 20060403
  Receipt Date: 20060321
  Transmission Date: 20061013
  Serious: Yes (Hospitalization, Other)
  Sender: FDA-Public Use
  Company Number: 2006016170

PATIENT
  Age: 50 Year
  Sex: Female

DRUGS (1)
  1. CELEBREX [Suspect]
     Indication: BACK PAIN
     Dosage: 200 MG (200 MG, 1 IN 1 D), ORAL
     Route: 048
     Dates: end: 20060109

REACTIONS (6)
  - CHILLS [None]
  - DIZZINESS [None]
  - OEDEMA PERIPHERAL [None]
  - RASH [None]
  - RESPIRATORY DISTRESS [None]
  - TACHYCARDIA [None]
